FAERS Safety Report 9844273 (Version 3)
Quarter: 2014Q1

REPORT INFORMATION
  Report Type: Spontaneous
  Country: JP (occurrence: JP)
  Receive Date: 20140127
  Receipt Date: 20140214
  Transmission Date: 20141002
  Serious: Yes (Hospitalization, Other)
  Sender: FDA-Public Use
  Company Number: JP-ORION CORPORATION ORION PHARMA-ENT 2013-0119

PATIENT
  Age: 68 Year
  Sex: Male
  Weight: 77 kg

DRUGS (4)
  1. COMTAN [Suspect]
     Indication: PARKINSON^S DISEASE
     Route: 048
     Dates: start: 2007, end: 20130709
  2. NEODOPASTON [Concomitant]
     Route: 065
     Dates: start: 2004
  3. BI-SIFROL [Concomitant]
     Route: 065
     Dates: start: 20041105
  4. FP-OD [Concomitant]
     Route: 065
     Dates: start: 20061120

REACTIONS (11)
  - Adams-Stokes syndrome [Unknown]
  - Atrial fibrillation [Unknown]
  - Gastric ulcer haemorrhage [Recovered/Resolved]
  - Cardiac disorder [Recovered/Resolved]
  - Amylase increased [Unknown]
  - Aspartate aminotransferase increased [Unknown]
  - Blood alkaline phosphatase decreased [Unknown]
  - Blood creatine phosphokinase increased [Unknown]
  - Blood glucose decreased [Unknown]
  - Blood lactate dehydrogenase decreased [Unknown]
  - Ventricular tachycardia [Recovered/Resolved]
